FAERS Safety Report 16874482 (Version 2)
Quarter: 2019Q4

REPORT INFORMATION
  Report Type: Spontaneous
  Country: US (occurrence: US)
  Receive Date: 20191001
  Receipt Date: 20191112
  Transmission Date: 20200122
  Serious: Yes (Other)
  Sender: FDA-Public Use
  Company Number: US-ASTRAZENECA-2019SF37291

PATIENT
  Age: 16349 Day
  Sex: Female
  Weight: 80.7 kg

DRUGS (5)
  1. BYDUREON [Suspect]
     Active Substance: EXENATIDE
     Indication: TYPE 2 DIABETES MELLITUS
     Route: 058
     Dates: start: 20190312
  2. HUMALOG [Concomitant]
     Active Substance: INSULIN LISPRO
     Dates: start: 201806, end: 2019
  3. BYETTA [Suspect]
     Active Substance: EXENATIDE
     Indication: TYPE 2 DIABETES MELLITUS
     Route: 065
  4. LANTUS [Concomitant]
     Active Substance: INSULIN GLARGINE
     Dosage: 30 UNITS
     Dates: start: 2019
  5. LANTUS [Concomitant]
     Active Substance: INSULIN GLARGINE
     Dosage: 20 UNITS

REACTIONS (9)
  - Nausea [Recovered/Resolved]
  - Pancreatitis acute [Recovered/Resolved]
  - Dysgeusia [Recovered/Resolved]
  - Weight increased [Recovered/Resolved]
  - Device issue [Unknown]
  - Hunger [Recovered/Resolved]
  - Injection site discomfort [Recovered/Resolved]
  - Vomiting [Recovered/Resolved]
  - Starvation [Recovered/Resolved]

NARRATIVE: CASE EVENT DATE: 20190312
